FAERS Safety Report 24446501 (Version 4)
Quarter: 2024Q4

REPORT INFORMATION
  Report Type: Spontaneous
  Country: FR (occurrence: FR)
  Receive Date: 20241016
  Receipt Date: 20241120
  Transmission Date: 20250115
  Serious: Yes (Hospitalization, Other)
  Sender: NOVARTIS
  Company Number: FR-002147023-NVSC2024FR201232

PATIENT
  Age: 69 Year
  Sex: Male

DRUGS (4)
  1. TEGRETOL [Suspect]
     Active Substance: CARBAMAZEPINE
     Indication: Neuralgia
     Dosage: 400 MG, BID (MORNING AND EVENING)
     Route: 065
  2. TEGRETOL [Suspect]
     Active Substance: CARBAMAZEPINE
     Dosage: 2X 200MG (MORNING AND EVENING)
     Route: 065
     Dates: start: 202306
  3. TEGRETOL [Suspect]
     Active Substance: CARBAMAZEPINE
     Dosage: 2X400MG (MORNING (800MG) AND EVENING (800MG)) (STOPPED-AFTER 3 WEEKS)
     Route: 065
     Dates: start: 202307
  4. TEGRETOL [Suspect]
     Active Substance: CARBAMAZEPINE
     Dosage: 200 MG, BID (MORNING AND EVENING)
     Route: 048
     Dates: start: 202308, end: 202407

REACTIONS (9)
  - Loss of consciousness [Unknown]
  - Cerebrovascular accident [Unknown]
  - Vomiting [Unknown]
  - Fatigue [Unknown]
  - Asthenia [Unknown]
  - Incorrect dose administered [Unknown]
  - Accidental overdose [Unknown]
  - Product availability issue [Unknown]
  - Fall [Unknown]

NARRATIVE: CASE EVENT DATE: 20230701
